FAERS Safety Report 9462063 (Version 1)
Quarter: 2013Q3

REPORT INFORMATION
  Report Type: Spontaneous
  Country: BR (occurrence: BR)
  Receive Date: 20130816
  Receipt Date: 20130816
  Transmission Date: 20140515
  Serious: Yes (Other)
  Sender: FDA-Public Use
  Company Number: BR-PFIZER INC-2013235353

PATIENT
  Age: 52 Year
  Sex: Male

DRUGS (3)
  1. CARDURAN XL [Suspect]
     Indication: PROSTATE CANCER
     Dosage: 4 MG, 1X/DAY
     Dates: start: 20100813, end: 201112
  2. ENALAPRIL MALEATE [Concomitant]
     Indication: BLOOD PRESSURE INCREASED
     Dosage: UNK
  3. SYNTHROID [Concomitant]
     Indication: HYPOTHYROIDISM
     Dosage: UNK

REACTIONS (2)
  - Renal cancer [Unknown]
  - Off label use [Unknown]
